FAERS Safety Report 7688317-9 (Version None)
Quarter: 2011Q3

REPORT INFORMATION
  Report Type: 
  Country: None (occurrence: None)
  Receive Date: 20110817
  Receipt Date: 20110812
  Transmission Date: 20111222
  Serious: Yes (Hospitalization)
  Sender: FDA-Public Use
  Company Number: DE-PFIZER INC-2011186040

PATIENT
  Age: 67 Year
  Sex: Female
  Weight: 70 kg

DRUGS (16)
  1. BLINDED NO SUBJECT DRUG [Suspect]
     Indication: ACUTE MYOCARDIAL INFARCTION
     Dosage: UNK MG, 1X/DAY
     Route: 048
     Dates: start: 20110802, end: 20110811
  2. CALCIUM CARBONATE/COLECALCIFEROL [Concomitant]
     Indication: OSTEOPOROSIS
     Dosage: CALCIUMCARBONAT 600 MG/ COLECALCIFEROL, 1X/DAY
     Route: 048
     Dates: start: 20080101
  3. SIMVASTATIN [Concomitant]
     Indication: HYPERCHOLESTEROLAEMIA
     Dosage: 40 MG, 1X/DAY
     Route: 048
     Dates: start: 20110802
  4. MAGNESIUM VERLA TABLET [Concomitant]
     Indication: MINERAL SUPPLEMENTATION
     Dosage: 5 MMOL, 2X/DAY
     Route: 048
     Dates: start: 20110805
  5. BISOPROLOL FUMARATE [Concomitant]
     Dosage: 2.5 MG, 1X/DAY
     Route: 048
     Dates: start: 20110811
  6. ASPIRIN [Concomitant]
     Indication: PROPHYLAXIS
     Dosage: 100 MG, 1X/DAY
     Route: 048
     Dates: start: 20110802
  7. BRILIQUE [Concomitant]
     Indication: PROPHYLAXIS
     Dosage: 90 MG, 2X/DAY
     Route: 048
     Dates: start: 20110802, end: 20110811
  8. BETNESOL-V [Concomitant]
     Indication: RASH
     Dosage: UNK, 3X/DAY
     Dates: start: 20110811
  9. PANTOPRAZOLE [Suspect]
     Dosage: UNK
  10. ENOXAPARIN SODIUM [Concomitant]
     Indication: PROPHYLAXIS
     Dosage: 4000 IU, 1X/DAY
     Route: 058
     Dates: start: 20110803
  11. OLMESARTAN [Concomitant]
     Indication: HYPERTENSION
     Dosage: 40 MG, 2X/DAY
     Route: 048
     Dates: start: 20110806
  12. PLACEBO [Suspect]
     Indication: ACUTE MYOCARDIAL INFARCTION
     Dosage: UNK MG, 1X/DAY
     Route: 048
     Dates: start: 20110802, end: 20110811
  13. BLINDED EPLERENONE [Suspect]
     Indication: ACUTE MYOCARDIAL INFARCTION
     Dosage: UNK MG, 1X/DAY
     Route: 048
     Dates: start: 20110802, end: 20110811
  14. ENOXAPARIN [Concomitant]
     Indication: PROPHYLAXIS
     Dosage: 4000 IU, 1X/DAY
     Route: 058
     Dates: start: 20110803
  15. BISOPROLOL FUMARATE [Concomitant]
     Indication: HYPERTENSION
     Dosage: 1.25 MG, 1X/DAY
     Route: 048
     Dates: start: 20110809, end: 20110810
  16. REKAWAN [Concomitant]
     Indication: ELECTROLYTE SUBSTITUTION THERAPY
     Dosage: 8.05 MMOL, 2X/DAY
     Route: 048
     Dates: start: 20110806

REACTIONS (1)
  - LONG QT SYNDROME [None]
